FAERS Safety Report 9010424 (Version 1)
Quarter: 2013Q1

REPORT INFORMATION
  Report Type: Spontaneous
  Country: AU (occurrence: AU)
  Receive Date: 20130109
  Receipt Date: 20130109
  Transmission Date: 20140127
  Serious: Yes (Other)
  Sender: FDA-Public Use
  Company Number: AU-ROCHE-1177874

PATIENT
  Sex: Female

DRUGS (5)
  1. HERCEPTIN [Suspect]
     Indication: BREAST CANCER
     Route: 065
     Dates: end: 201111
  2. XELODA [Suspect]
     Indication: BREAST CANCER
     Route: 065
     Dates: end: 201204
  3. TAXANE (UNK INGREDIENTS) [Concomitant]
  4. NAVELBINE [Concomitant]
  5. LAPATINIB [Concomitant]
     Route: 065
     Dates: end: 201204

REACTIONS (2)
  - Disease progression [Unknown]
  - Hepatotoxicity [Unknown]
